FAERS Safety Report 18265077 (Version 2)
Quarter: 2021Q3

REPORT INFORMATION
  Report Type: Spontaneous
  Country: KP (occurrence: KP)
  Receive Date: 20200915
  Receipt Date: 20210708
  Transmission Date: 20211014
  Serious: Yes (Other)
  Sender: FDA-Public Use
  Company Number: KP-LUPIN PHARMACEUTICALS INC.-2020-05761

PATIENT
  Age: 62 Year
  Sex: Female

DRUGS (1)
  1. VANCOMYCIN [Suspect]
     Active Substance: VANCOMYCIN
     Indication: CATARACT
     Dosage: UNK

REACTIONS (1)
  - Retinal vasculitis [Recovering/Resolving]
